FAERS Safety Report 23345577 (Version 1)
Quarter: 2023Q4

REPORT INFORMATION
  Report Type: Spontaneous
  Country: US (occurrence: US)
  Receive Date: 20231228
  Receipt Date: 20231228
  Transmission Date: 20240110
  Serious: Yes (Other)
  Sender: FDA-Public Use
  Company Number: US-MSNLABS-2023MSNLIT02373

PATIENT

DRUGS (1)
  1. LACOSAMIDE [Suspect]
     Active Substance: LACOSAMIDE
     Indication: Product used for unknown indication
     Route: 065

REACTIONS (1)
  - Hepatic cirrhosis [Unknown]
